FAERS Safety Report 10538290 (Version 1)
Quarter: 2014Q4

REPORT INFORMATION
  Report Type: Spontaneous
  Country: JP (occurrence: JP)
  Receive Date: 20141023
  Receipt Date: 20141023
  Transmission Date: 20150529
  Serious: Yes (Other)
  Sender: FDA-Public Use
  Company Number: PHHY2014JP134590

PATIENT
  Age: 74 Year
  Sex: Male

DRUGS (2)
  1. CILOSTAZOL. [Suspect]
     Active Substance: CILOSTAZOL
     Dosage: 200 MG, UNK
     Dates: start: 20050211, end: 20050602
  2. DIGOXIN. [Suspect]
     Active Substance: DIGOXIN
     Indication: PRODUCT USED FOR UNKNOWN INDICATION
     Dosage: 0.125 MG, UNK
     Route: 065

REACTIONS (2)
  - Gynaecomastia [Unknown]
  - Bradycardia [Unknown]
